FAERS Safety Report 15371424 (Version 1)
Quarter: 2018Q3

REPORT INFORMATION
  Report Type: Spontaneous
  Country: US (occurrence: US)
  Receive Date: 20180905
  Receipt Date: 20180905
  Transmission Date: 20181010
  Serious: Yes (Other)
  Sender: FDA-Public Use
  Company Number: None

PATIENT
  Age: 64 Year
  Sex: Male
  Weight: 69.75 kg

DRUGS (14)
  1. TAMSULOSIN [Concomitant]
     Active Substance: TAMSULOSIN
  2. SAW PALMETTO [Concomitant]
     Active Substance: HERBALS\SAW PALMETTO
  3. PREDNISONE 20 MG TABLET [Suspect]
     Active Substance: PREDNISONE
     Indication: UPPER RESPIRATORY TRACT CONGESTION
     Dosage: ?          QUANTITY:2 TABLET(S);?
     Route: 048
  4. VITAMIN C [Concomitant]
     Active Substance: ASCORBIC ACID
  5. STOOL SOFTENER (DOCUSATE) [Concomitant]
     Active Substance: DOCUSATE
  6. COQ10 [Concomitant]
     Active Substance: UBIDECARENONE
  7. FLONASE [Concomitant]
     Active Substance: FLUTICASONE PROPIONATE
  8. CALCIUM CITRATE AND MAGNESIUM [Concomitant]
  9. VITAMIN D3 [Concomitant]
     Active Substance: CHOLECALCIFEROL
  10. CLARITHROMYCIN EXTENDED RELEASE [Concomitant]
     Active Substance: CLARITHROMYCIN
  11. MUCINEX [Concomitant]
     Active Substance: GUAIFENESIN
  12. PROBIOTIC [Concomitant]
     Active Substance: PROBIOTICS NOS
  13. DAILY MEN^S VITAMIN [Concomitant]
  14. FISH OIL [Concomitant]
     Active Substance: FISH OIL

REACTIONS (2)
  - Hiccups [None]
  - Gastrooesophageal reflux disease [None]

NARRATIVE: CASE EVENT DATE: 20180727
